FAERS Safety Report 6231724-1 (Version None)
Quarter: 2009Q2

REPORT INFORMATION
  Report Type: 
  Country: None (occurrence: None)
  Receive Date: 20090616
  Receipt Date: 20090604
  Transmission Date: 20091009
  Serious: Yes (Hospitalization, Other)
  Sender: FDA-Public Use
  Company Number: BR-PFIZER INC-2009222975

PATIENT
  Age: 71 Year

DRUGS (7)
  1. DETRUSITOL LA [Suspect]
     Indication: NEUROGENIC BLADDER
     Dosage: 4 MG, 1X/DAY
  2. VENLAFAXINE [Concomitant]
     Dosage: UNK
  3. ALPRAZOLAM [Concomitant]
     Dosage: UNK
  4. MIRTAZAPINE [Concomitant]
     Dosage: UNK
  5. REMERON [Concomitant]
     Dosage: UNK
  6. AMLODIPINE [Concomitant]
     Indication: HYPERTENSION
     Dosage: UNK
  7. NATRILIX [Concomitant]
     Indication: HYPERTENSION
     Dosage: UNK

REACTIONS (4)
  - MALAISE [None]
  - PROSTATIC OPERATION [None]
  - URINARY INCONTINENCE [None]
  - URINARY TRACT INFECTION [None]
